FAERS Safety Report 6417204-9 (Version None)
Quarter: 2009Q4

REPORT INFORMATION
  Report Type: 
  Country: None (occurrence: None)
  Receive Date: 20091027
  Receipt Date: 20091027
  Transmission Date: 20100525
  Serious: Yes (Death)
  Sender: FDA-Public Use
  Company Number: None

PATIENT
  Age: 32 Year
  Sex: Male
  Weight: 50 kg

DRUGS (7)
  1. COVIRO LS 30 (LAMIVUDINE/STAVUDINE) [Suspect]
     Indication: HIV INFECTION
     Dosage: 300MG/60MG QD ORAL
     Route: 048
     Dates: start: 20090123, end: 20090526
  2. EFAVIRENZ [Suspect]
     Indication: HIV INFECTION
     Dosage: 600MG QD ORAL
     Route: 048
     Dates: start: 20090123, end: 20090526
  3. AKURIT-4 [Suspect]
     Indication: TUBERCULOSIS
     Dosage: 450/225/825/1200MG QD ORAL
     Route: 048
     Dates: start: 20090110, end: 20090319
  4. AKURIT [Suspect]
     Indication: TUBERCULOSIS
     Dosage: 375/187.5 MG QD ORAL
     Route: 048
     Dates: start: 20090319, end: 20090714
  5. LAMIVUDINE [Suspect]
     Indication: HIV INFECTION
     Dosage: 300MG QD ORAL
     Route: 048
     Dates: start: 20090706, end: 20090714
  6. EFAVIRENZ [Suspect]
     Indication: HIV INFECTION
     Dosage: 600MG QD ORAL
     Route: 048
     Dates: start: 20090706, end: 20090714
  7. ZIDOVUDINE [Concomitant]

REACTIONS (15)
  - ABDOMINAL WALL ABSCESS [None]
  - CYST RUPTURE [None]
  - DYSPNOEA [None]
  - ENTEROVESICAL FISTULA [None]
  - HAEMORRHAGIC CYST [None]
  - HEPATIC CYST [None]
  - HEPATIC NECROSIS [None]
  - HYPOTENSION [None]
  - OLIGURIA [None]
  - PANCREATIC PSEUDOCYST [None]
  - PERITONITIS [None]
  - PLEURAL HAEMORRHAGE [None]
  - PLEURISY [None]
  - SPLENIC CYST [None]
  - URINARY TRACT INFECTION [None]
